FAERS Safety Report 5286503-9 (Version None)
Quarter: 2007Q2

REPORT INFORMATION
  Report Type: 
  Country: None (occurrence: None)
  Receive Date: 20070404
  Receipt Date: 20070330
  Transmission Date: 20071010
  Serious: No
  Sender: FDA-Public Use
  Company Number: 2006UW10724

PATIENT
  Age: 38 Year
  Sex: Male
  Weight: 109.1 kg

DRUGS (3)
  1. SEROQUEL [Suspect]
     Indication: BIPOLAR DISORDER
     Dosage: 100-200 MG DAILY
     Route: 048
     Dates: start: 19990101, end: 20020101
  2. CLOZARIL [Concomitant]
  3. RISPERDAL [Concomitant]

REACTIONS (1)
  - DIABETES MELLITUS [None]
